FAERS Safety Report 15772123 (Version 2)
Quarter: 2019Q1

REPORT INFORMATION
  Report Type: Spontaneous
  Country: US (occurrence: US)
  Receive Date: 20181228
  Receipt Date: 20190204
  Transmission Date: 20190417
  Serious: No
  Sender: FDA-Public Use
  Company Number: US-SA-2018SA394477

PATIENT
  Age: 12 Year
  Sex: Male
  Weight: 36.28 kg

DRUGS (13)
  1. METHYLPREDNISOLONE. [Concomitant]
     Active Substance: METHYLPREDNISOLONE
     Dosage: 40 MG, PRN
     Route: 042
     Dates: start: 20171101
  2. ADDERALL [Concomitant]
     Active Substance: AMPHETAMINE ASPARTATE\AMPHETAMINE SULFATE\DEXTROAMPHETAMINE SACCHARATE\DEXTROAMPHETAMINE SULFATE
     Dosage: 5 MG, QD
     Route: 048
     Dates: start: 20170104
  3. ALBUTEROL [SALBUTAMOL] [Concomitant]
     Active Substance: ALBUTEROL
     Dosage: 1 DF, PRN
     Dates: start: 20160609
  4. RIFAMPIN. [Concomitant]
     Active Substance: RIFAMPIN
     Dosage: 1 DF, PRN
     Route: 048
     Dates: start: 20120821
  5. HEPARIN [Concomitant]
     Active Substance: HEPARIN SODIUM
     Indication: FLUSHING
     Dosage: 100 UNITS/ML; AS DIRECTED
     Route: 042
     Dates: start: 20171101
  6. NORMAL SALINE [Concomitant]
     Active Substance: SODIUM CHLORIDE
     Indication: FLUSHING
     Dosage: 0.9 %, PRN
     Route: 042
     Dates: start: 20171101
  7. EPINEPHRINE. [Concomitant]
     Active Substance: EPINEPHRINE
     Indication: ANAPHYLACTIC REACTION
     Dosage: 12.5 MG, PRN
     Route: 042
     Dates: start: 20171101
  8. BACTRIM DS [Concomitant]
     Active Substance: SULFAMETHOXAZOLE\TRIMETHOPRIM
     Dosage: 1 DF, PRN
     Route: 048
     Dates: start: 20120821
  9. LIDOCAINE. [Concomitant]
     Active Substance: LIDOCAINE
     Indication: PREMEDICATION
     Dosage: 2.5 %
     Route: 061
     Dates: start: 20171101
  10. SODIUM CHLORIDE. [Concomitant]
     Active Substance: SODIUM CHLORIDE
     Indication: FLUSHING
     Dosage: 0.9 %, PRN
     Route: 042
     Dates: start: 20171101
  11. AMOXICILLIN. [Concomitant]
     Active Substance: AMOXICILLIN
     Dosage: 1 DF, PRN
     Route: 048
     Dates: start: 20131211
  12. DIPHENHYDRAMINE. [Concomitant]
     Active Substance: DIPHENHYDRAMINE
     Indication: ANAPHYLACTIC REACTION
     Dosage: 25 MG, PRN
     Route: 042
     Dates: start: 20171101
  13. LARONIDASE [Suspect]
     Active Substance: LARONIDASE
     Indication: MUCOPOLYSACCHARIDOSIS
     Dosage: 0.56 MG/KG, 20.3 MG QW
     Route: 041
     Dates: start: 20120505

REACTIONS (2)
  - Nasopharyngitis [Not Recovered/Not Resolved]
  - Device issue [Unknown]
